FAERS Safety Report 20668545 (Version 1)
Quarter: 2022Q2

REPORT INFORMATION
  Report Type: Spontaneous
  Country: US (occurrence: US)
  Receive Date: 20220404
  Receipt Date: 20220404
  Transmission Date: 20220721
  Serious: No
  Sender: FDA-Public Use
  Company Number: US-MYLANLABS-2022M1023295

PATIENT
  Age: 64 Year
  Sex: Female
  Weight: 90.72 kg

DRUGS (6)
  1. POTASSIUM CHLORIDE [Suspect]
     Active Substance: POTASSIUM CHLORIDE
     Indication: Muscle spasms
     Dosage: 10 MILLIEQUIVALENT, QD (TWO TABLETS)
  2. COMIRNATY [Suspect]
     Active Substance: TOZINAMERAN
     Indication: Immunisation
     Dosage: UNK (BOOSTER DOSE ADMINISTERED TO RIGHT UPPER ARM)
     Dates: start: 20210802, end: 20210802
  3. COMIRNATY [Suspect]
     Active Substance: TOZINAMERAN
     Dosage: UNK (SECOND DOSE)
     Dates: start: 20210823, end: 20210823
  4. COMIRNATY [Suspect]
     Active Substance: TOZINAMERAN
     Dosage: UNK (BOOSTER DOSE)
     Dates: start: 20220321, end: 20220321
  5. MAGNESIUM OXIDE [Concomitant]
     Active Substance: MAGNESIUM OXIDE
     Indication: Muscle spasms
     Dosage: UNK
  6. IBUPROFEN [Concomitant]
     Active Substance: IBUPROFEN
     Indication: Muscle spasms
     Dosage: UNK

REACTIONS (1)
  - Drug ineffective [Recovering/Resolving]

NARRATIVE: CASE EVENT DATE: 20220321
